FAERS Safety Report 9216334 (Version 2)
Quarter: 2013Q2

REPORT INFORMATION
  Report Type: Report from Study
  Country: US (occurrence: US)
  Receive Date: 20130408
  Receipt Date: 20130429
  Transmission Date: 20140414
  Serious: Yes (Hospitalization, Other)
  Sender: FDA-Public Use
  Company Number: PHEH2013US007593

PATIENT
  Age: 73 Year
  Sex: Male
  Weight: 88 kg

DRUGS (18)
  1. GLEEVEC [Suspect]
     Indication: ACUTE LYMPHOCYTIC LEUKAEMIA
     Dosage: 400 MG, DAILY
     Route: 048
     Dates: start: 20130220
  2. GLEEVEC [Suspect]
     Dosage: UNK UKN, UNK
     Route: 048
     Dates: start: 20130409
  3. AMLODIPINE BESILATE [Concomitant]
     Dosage: 5 MG, DAILY
     Route: 048
  4. FOLIC ACID [Concomitant]
     Dosage: 1 MG, DAILY
  5. GABAPENTIN [Concomitant]
     Dosage: 400 MG, DAILY
     Route: 048
  6. HIDRALAZINA//HYDRALAZINE HYDROCHLORIDE [Concomitant]
     Dosage: 2 DF (25 MG)
     Route: 048
  7. LEVAQUIN [Concomitant]
     Dosage: UNK UKN, UNK
  8. METOPROLOL TARTRATE [Concomitant]
     Dosage: 2 DF (25 MG) DAILY
     Route: 048
  9. FUROSEMIDE [Concomitant]
     Dosage: 20 MG, DAILY
     Route: 048
  10. ASPIRIN [Concomitant]
     Dosage: 81 MG, DAILY
     Route: 048
  11. DRONABINOL [Concomitant]
     Dosage: UNK UKN, UNK
  12. FLOMAX [Concomitant]
     Dosage: UNK UKN, UNK
  13. VALTREX [Concomitant]
     Dosage: UNK UKN, UNK
  14. PANTOPRAZOLE [Concomitant]
     Dosage: 40 MG, DAILY
     Route: 048
  15. BLOOD TESTS, AUXILIARY PRODUCTS [Concomitant]
     Dosage: UNK UKN, UNK
  16. CYTARABINE [Concomitant]
     Dosage: UNK UKN, UNK
  17. IDARUBICIN [Concomitant]
     Dosage: UNK UKN, UNK
  18. FLUID/ELECTROLYTE REPLACEMENT THERAPY [Concomitant]
     Dosage: UNK UKN, UNK

REACTIONS (6)
  - Fall [Recovered/Resolved]
  - Acute lymphocytic leukaemia recurrent [Unknown]
  - Pancytopenia [Unknown]
  - Neutropenia [Unknown]
  - Chest pain [Unknown]
  - Oedema peripheral [Unknown]
